FAERS Safety Report 23377871 (Version 1)
Quarter: 2024Q1

REPORT INFORMATION
  Report Type: Spontaneous
  Country: US (occurrence: US)
  Receive Date: 20240108
  Receipt Date: 20240108
  Transmission Date: 20240410
  Serious: Yes (Death, Hospitalization)
  Sender: FDA-Public Use
  Company Number: US-PFIZER INC-202300456313

PATIENT
  Age: 83 Year
  Sex: Female
  Weight: 47.63 kg

DRUGS (1)
  1. VYNDAMAX [Suspect]
     Active Substance: TAFAMIDIS
     Indication: Cardiac disorder
     Dosage: TAKE 1 CAPSULE AT NIGHT

REACTIONS (6)
  - Renal failure [Fatal]
  - Cardiac disorder [Unknown]
  - Pneumonia [Unknown]
  - Hypotension [Unknown]
  - Heart rate decreased [Unknown]
  - Weight decreased [Unknown]

NARRATIVE: CASE EVENT DATE: 20231123
